FAERS Safety Report 16066563 (Version 1)
Quarter: 2019Q1

REPORT INFORMATION
  Report Type: Spontaneous
  Country: IT (occurrence: IT)
  Receive Date: 20190313
  Receipt Date: 20190313
  Transmission Date: 20190418
  Serious: Yes (Other)
  Sender: FDA-Public Use
  Company Number: IT-AMGEN-ITASP2019036699

PATIENT
  Age: 48 Year
  Sex: Female

DRUGS (3)
  1. MIMPARA [Suspect]
     Active Substance: CINACALCET HYDROCHLORIDE
     Indication: PARATHYROID DISORDER
     Dosage: 180 MICROGRAM
     Route: 065
  2. MIMPARA [Suspect]
     Active Substance: CINACALCET HYDROCHLORIDE
     Dosage: 30 MILLIGRAM, QD
     Route: 065
  3. PARICALCITOL. [Concomitant]
     Active Substance: PARICALCITOL
     Indication: PARATHYROID DISORDER
     Dosage: 15 MICROGRAM, QWK

REACTIONS (1)
  - Parathyroid disorder [Unknown]
